FAERS Safety Report 6545608-2 (Version None)
Quarter: 2010Q1

REPORT INFORMATION
  Report Type: 
  Country: None (occurrence: None)
  Receive Date: 20100119
  Receipt Date: 20100108
  Transmission Date: 20100710
  Serious: Yes (Death)
  Sender: FDA-Public Use
  Company Number: OPER20100008

PATIENT
  Age: 46 Year
  Sex: Female

DRUGS (3)
  1. OPANA ER [Suspect]
     Indication: DRUG USE FOR UNKNOWN INDICATION
  2. CYCLOBENZAPRINE [Suspect]
     Indication: DRUG USE FOR UNKNOWN INDICATION
  3. ACETAMINOPHEN [Suspect]
     Indication: DRUG USE FOR UNKNOWN INDICATION

REACTIONS (1)
  - COMPLETED SUICIDE [None]
